FAERS Safety Report 9466292 (Version 2)
Quarter: 2013Q4

REPORT INFORMATION
  Report Type: Spontaneous
  Country: US (occurrence: US)
  Receive Date: 20130820
  Receipt Date: 20131112
  Transmission Date: 20140711
  Serious: Yes (Other)
  Sender: FDA-Public Use
  Company Number: US-BAYER-2013-099810

PATIENT
  Age: 33 Year
  Sex: Female
  Weight: 73 kg

DRUGS (3)
  1. MIRENA [Suspect]
     Indication: CONTRACEPTION
     Dosage: 20 MCG/24HR, CONT
     Route: 015
     Dates: start: 201106, end: 201301
  2. PERCOCET [Concomitant]
     Indication: PAIN
     Dosage: 5/325 MG 1-2 TABS EVERY 4 HOURS P.R.N
  3. IBUPROFEN [Concomitant]
     Indication: PAIN
     Dosage: 100 MG, 1 EVERY 8 HOURS P.R.N

REACTIONS (9)
  - Uterine perforation [None]
  - Injury [None]
  - Pain [None]
  - Device issue [None]
  - Emotional distress [None]
  - Pregnancy with contraceptive device [None]
  - Drug ineffective [None]
  - Depression [None]
  - Anxiety [None]
